FAERS Safety Report 25025296 (Version 1)
Quarter: 2025Q1

REPORT INFORMATION
  Report Type: Spontaneous
  Country: US (occurrence: US)
  Receive Date: 20250228
  Receipt Date: 20250228
  Transmission Date: 20250409
  Serious: No
  Sender: PFIZER
  Company Number: US-PFIZER INC-202500045156

PATIENT
  Age: 60 Year
  Sex: Male

DRUGS (2)
  1. IRINOTECAN HYDROCHLORIDE [Suspect]
     Active Substance: IRINOTECAN HYDROCHLORIDE
     Dates: start: 20241031
  2. PANITUMUMAB [Suspect]
     Active Substance: PANITUMUMAB
     Dates: start: 20241031

REACTIONS (2)
  - Rash [Unknown]
  - Neoplasm progression [Unknown]
